FAERS Safety Report 7346748-0 (Version None)
Quarter: 2011Q1

REPORT INFORMATION
  Report Type: 
  Country: None (occurrence: None)
  Receive Date: 20110311
  Receipt Date: 20110308
  Transmission Date: 20110831
  Serious: Yes (Hospitalization)
  Sender: FDA-Public Use
  Company Number: GB-BRISTOL-MYERS SQUIBB COMPANY-15201205

PATIENT
  Age: 49 Year
  Sex: Female

DRUGS (6)
  1. FOLIC ACID [Concomitant]
     Indication: PROPHYLAXIS
     Dates: start: 20100602
  2. VITAMIN B-12 [Concomitant]
     Indication: PROPHYLAXIS
     Dates: start: 20100609, end: 20100609
  3. CISPLATIN [Suspect]
     Indication: NON-SMALL CELL LUNG CANCER
     Dosage: LAST DOSE= 9-JUN-2010
     Route: 042
  4. ALIMTA [Suspect]
     Indication: NON-SMALL CELL LUNG CANCER
     Dosage: LAST DOSE= 9JUN2010-ONG
     Route: 042
  5. ALIMTA [Suspect]
     Indication: NON-SMALL CELL LUNG CANCER
     Route: 042
     Dates: start: 20100609
  6. DEXAMETHASONE [Concomitant]
     Indication: PROPHYLAXIS
     Dates: start: 20100608, end: 20100610

REACTIONS (5)
  - DYSPNOEA [None]
  - PULMONARY EMBOLISM [None]
  - COUGH [None]
  - PLEURITIC PAIN [None]
  - HAEMOPTYSIS [None]
